FAERS Safety Report 14195869 (Version 1)
Quarter: 2017Q4

REPORT INFORMATION
  Report Type: Spontaneous
  Country: US (occurrence: US)
  Receive Date: 20171116
  Receipt Date: 20171116
  Transmission Date: 20180321
  Serious: No
  Sender: FDA-Public Use
  Company Number: US-BAUSCH-BL-2017-022065

PATIENT
  Sex: Male
  Weight: 24.06 kg

DRUGS (1)
  1. XENAZINE [Suspect]
     Active Substance: TETRABENAZINE
     Indication: CHOREA
     Dates: start: 201603

REACTIONS (3)
  - Prescribed overdose [Not Recovered/Not Resolved]
  - Treatment noncompliance [Unknown]
  - Fall [Not Recovered/Not Resolved]
